APPROVED DRUG PRODUCT: FLUVOXAMINE MALEATE
Active Ingredient: FLUVOXAMINE MALEATE
Strength: 100MG
Dosage Form/Route: TABLET;ORAL
Application: A217917 | Product #003 | TE Code: AB
Applicant: BIONPHARMA INC
Approved: Jan 22, 2024 | RLD: No | RS: No | Type: RX